FAERS Safety Report 7591157-2 (Version None)
Quarter: 2011Q3

REPORT INFORMATION
  Report Type: 
  Country: None (occurrence: None)
  Receive Date: 20110705
  Receipt Date: 20110623
  Transmission Date: 20111222
  Serious: Yes (Hospitalization)
  Sender: FDA-Public Use
  Company Number: US-ASTRAZENECA-2011SE38289

PATIENT
  Age: 42 Year
  Sex: Male
  Weight: 93 kg

DRUGS (4)
  1. SEROQUEL XR [Suspect]
     Indication: ANXIETY
     Route: 048
  2. SEROQUEL XR [Suspect]
     Indication: DEPRESSION
     Route: 048
  3. AMBIEN [Concomitant]
     Indication: SLEEP DISORDER
  4. CELEXA [Concomitant]
     Indication: DEPRESSION

REACTIONS (4)
  - FALL [None]
  - HEADACHE [None]
  - DRUG DOSE OMISSION [None]
  - COUGH [None]
